FAERS Safety Report 6381242-5 (Version None)
Quarter: 2009Q3

REPORT INFORMATION
  Report Type: 
  Country: None (occurrence: None)
  Receive Date: 20090923
  Receipt Date: 20090910
  Transmission Date: 20100115
  Serious: Yes (Other)
  Sender: FDA-Public Use
  Company Number: DE-1170729

PATIENT
  Age: 9 Year
  Sex: Male

DRUGS (1)
  1. MAXITROL [Suspect]
     Indication: CONJUNCTIVITIS
     Dosage: OU QID
     Route: 047
     Dates: start: 20090814, end: 20090821

REACTIONS (5)
  - ACCOMMODATION DISORDER [None]
  - HEADACHE [None]
  - INTRAOCULAR PRESSURE INCREASED [None]
  - VISION BLURRED [None]
  - VISUAL IMPAIRMENT [None]
